FAERS Safety Report 20301604 (Version 1)
Quarter: 2022Q1

REPORT INFORMATION
  Report Type: Spontaneous
  Country: CN (occurrence: CN)
  Receive Date: 20220105
  Receipt Date: 20220105
  Transmission Date: 20220423
  Serious: Yes (Hospitalization)
  Sender: FDA-Public Use
  Company Number: CN-PFIZER INC-202101878439

PATIENT
  Age: 80 Year
  Sex: Male
  Weight: 62 kg

DRUGS (2)
  1. XELJANZ [Suspect]
     Active Substance: TOFACITINIB CITRATE
     Indication: Immunosuppression
     Dosage: 5 MG, 2X/DAY
     Route: 048
     Dates: start: 20210903, end: 20211008
  2. METHOTREXATE [Suspect]
     Active Substance: METHOTREXATE
     Indication: Immunosuppression
     Dosage: 10 MG, WEEKLY
     Route: 048
     Dates: start: 20210903, end: 20211008

REACTIONS (3)
  - Pneumonia [Recovering/Resolving]
  - Bronchitis chronic [Recovering/Resolving]
  - Emphysema [Recovering/Resolving]

NARRATIVE: CASE EVENT DATE: 20210915
